FAERS Safety Report 10640860 (Version 1)
Quarter: 2014Q4

REPORT INFORMATION
  Report Type: Spontaneous
  Country: CN (occurrence: None)
  Receive Date: 20141205
  Receipt Date: 20141205
  Transmission Date: 20150529
  Serious: Yes (Hospitalization)
  Sender: FDA-Public Use
  Company Number: CN2014GSK027844

PATIENT
  Age: 76 Year
  Sex: Female

DRUGS (2)
  1. SEROXAT (PAROXETINE HYDROCHLORIDE) TABLET [Suspect]
     Active Substance: PAROXETINE HYDROCHLORIDE
     Indication: ANXIETY
     Route: 048
     Dates: start: 2004, end: 2008
  2. SEROXAT (PAROXETINE HYDROCHLORIDE) TABLET [Suspect]
     Active Substance: PAROXETINE HYDROCHLORIDE
     Indication: DEPRESSION
     Route: 048
     Dates: start: 2004, end: 2008

REACTIONS (2)
  - Refusal of treatment by patient [None]
  - Duodenal ulcer haemorrhage [None]

NARRATIVE: CASE EVENT DATE: 201306
